FAERS Safety Report 8136149-X (Version None)
Quarter: 2012Q1

REPORT INFORMATION
  Report Type: 
  Country: None (occurrence: None)
  Receive Date: 20120214
  Receipt Date: 20120207
  Transmission Date: 20120608
  Serious: Yes (Other)
  Sender: FDA-Public Use
  Company Number: PHHY2012BR008089

PATIENT
  Age: 49 Year
  Sex: Female
  Weight: 64 kg

DRUGS (4)
  1. MEVILIP [Concomitant]
     Indication: BLOOD CHOLESTEROL
  2. TOPIRAMATE [Suspect]
     Dosage: 1 DF, QHS
     Route: 048
     Dates: start: 20120126, end: 20120131
  3. TOPIRAMATE [Suspect]
     Indication: MIGRAINE
     Dosage: 1 DF, QHS
     Route: 048
  4. SYNTHROID [Concomitant]
     Indication: THYROID DISORDER

REACTIONS (3)
  - EMOTIONAL DISTRESS [None]
  - FEAR [None]
  - DEPRESSION [None]
